FAERS Safety Report 25350453 (Version 1)
Quarter: 2025Q2

REPORT INFORMATION
  Report Type: Report from Study
  Country: US (occurrence: US)
  Receive Date: 20250523
  Receipt Date: 20250523
  Transmission Date: 20250716
  Serious: Yes (Hospitalization)
  Sender: TAKEDA
  Company Number: US-TAKEDA-2025TUS048033

PATIENT
  Sex: Female
  Weight: 72.57 kg

DRUGS (11)
  1. HUMAN IMMUNOGLOBULIN G [Suspect]
     Active Substance: HUMAN IMMUNOGLOBULIN G
     Indication: Immunodeficiency common variable
     Dosage: 25 GRAM, Q4WEEKS
  2. HUMAN IMMUNOGLOBULIN G [Suspect]
     Active Substance: HUMAN IMMUNOGLOBULIN G
  3. CARVEDILOL [Concomitant]
     Active Substance: CARVEDILOL
  4. IBUPROFEN [Concomitant]
     Active Substance: IBUPROFEN
  5. TYLENOL [Concomitant]
     Active Substance: ACETAMINOPHEN
  6. VITAMIN D [Concomitant]
     Active Substance: VITAMIN D NOS
  7. RYBELSUS [Concomitant]
     Active Substance: SEMAGLUTIDE
  8. IRON [Concomitant]
     Active Substance: IRON
  9. CETIRIZINE HCL [Concomitant]
     Active Substance: CETIRIZINE HYDROCHLORIDE
  10. TRULANCE [Concomitant]
     Active Substance: PLECANATIDE
  11. BOTOX [Concomitant]
     Active Substance: ONABOTULINUMTOXINA

REACTIONS (1)
  - Blood pressure abnormal [Unknown]
